FAERS Safety Report 15811323 (Version 1)
Quarter: 2019Q1

REPORT INFORMATION
  Report Type: Report from Study
  Country: US (occurrence: US)
  Receive Date: 20190111
  Receipt Date: 20190111
  Transmission Date: 20190417
  Serious: No
  Sender: FDA-Public Use
  Company Number: PHEH2019US000915

PATIENT
  Sex: Female

DRUGS (1)
  1. KISQALI [Suspect]
     Active Substance: RIBOCICLIB
     Indication: PRODUCT USED FOR UNKNOWN INDICATION
     Route: 048

REACTIONS (7)
  - Pain [Unknown]
  - Gastrooesophageal reflux disease [Unknown]
  - Hepatic enzyme abnormal [Unknown]
  - Muscle twitching [Unknown]
  - Nausea [Unknown]
  - Anaemia [Unknown]
  - Headache [Unknown]
